FAERS Safety Report 24580075 (Version 1)
Quarter: 2024Q4

REPORT INFORMATION
  Report Type: Spontaneous
  Country: US (occurrence: None)
  Receive Date: 20241104
  Receipt Date: 20241104
  Transmission Date: 20250115
  Serious: Yes (Hospitalization)
  Sender: Public
  Company Number: None

PATIENT
  Age: 63 Year
  Sex: Male
  Weight: 92 kg

DRUGS (2)
  1. ROSUVASTATIN CALCIUM [Suspect]
     Active Substance: ROSUVASTATIN CALCIUM
     Indication: Hypertension
     Dosage: 40.00 MG DAILY ORAL
     Route: 048
  2. FEBUXOSTAT [Suspect]
     Active Substance: FEBUXOSTAT
     Dosage: 80.00 MG DAILY ORAL
     Route: 048

REACTIONS (10)
  - Myalgia [None]
  - Vision blurred [None]
  - Abdominal pain [None]
  - Acute kidney injury [None]
  - Rhabdomyolysis [None]
  - Hyperkalaemia [None]
  - Hypokalaemia [None]
  - Acute kidney injury [None]
  - Drug interaction [None]
  - Treatment noncompliance [None]

NARRATIVE: CASE EVENT DATE: 20240613
